FAERS Safety Report 16942178 (Version 1)
Quarter: 2019Q4

REPORT INFORMATION
  Report Type: Spontaneous
  Country: IT (occurrence: IT)
  Receive Date: 20191021
  Receipt Date: 20191021
  Transmission Date: 20200122
  Serious: Yes (Hospitalization, Other)
  Sender: FDA-Public Use
  Company Number: IT-SA-2018SA335952

PATIENT
  Age: 42 Year
  Sex: Female

DRUGS (4)
  1. CETIRIZINE [Concomitant]
     Active Substance: CETIRIZINE HYDROCHLORIDE
     Indication: PROPHYLAXIS
     Dosage: 10 MG, QD
  2. ACICLOVIR [Concomitant]
     Active Substance: ACYCLOVIR
     Indication: PROPHYLAXIS
     Dosage: 400 MG, QD
  3. LEMTRADA [Suspect]
     Active Substance: ALEMTUZUMAB
     Indication: RELAPSING-REMITTING MULTIPLE SCLEROSIS
     Dosage: 12 MG, QD
     Route: 041
     Dates: start: 20181126, end: 20181130
  4. BACTRIM [Concomitant]
     Active Substance: SULFAMETHOXAZOLE\TRIMETHOPRIM
     Indication: PROPHYLAXIS
     Dosage: (600 + 180) TAB, TIW

REACTIONS (9)
  - Neutrophilia [Recovering/Resolving]
  - Meningitis [Recovering/Resolving]
  - Lateral medullary syndrome [Recovering/Resolving]
  - Musculoskeletal stiffness [Recovering/Resolving]
  - Cerebrovascular accident [Recovering/Resolving]
  - Vertigo [Recovering/Resolving]
  - Respiratory distress [Unknown]
  - Pyrexia [Recovering/Resolving]
  - Haemorrhagic infarction [Unknown]

NARRATIVE: CASE EVENT DATE: 201812
